FAERS Safety Report 12093350 (Version 1)
Quarter: 2016Q1

REPORT INFORMATION
  Report Type: Spontaneous
  Country: US (occurrence: None)
  Receive Date: 20160218
  Receipt Date: 20160218
  Transmission Date: 20160526
  Serious: No
  Sender: FDA-Public Use
  Company Number: None

PATIENT

DRUGS (4)
  1. LEVETIRACETAM. [Suspect]
     Active Substance: LEVETIRACETAM
     Dosage: INJECTABLE IV USE 500 MG/5 ML
     Route: 042
  2. FLUMAZENIL. [Suspect]
     Active Substance: FLUMAZENIL
     Dosage: INJECTABLE IV USE 0.5 MG/5 ML
     Route: 042
  3. CEFAZOLIN SODIUM. [Suspect]
     Active Substance: CEFAZOLIN SODIUM
     Dosage: INJECTABLE IV USE 1 GRAM/VIAL
     Route: 042
  4. MILRINONE LACTATE. [Suspect]
     Active Substance: MILRINONE LACTATE
     Dosage: INJECTABLE INTRAVENOUS USE 10 MG/10 ML???
     Route: 042

REACTIONS (2)
  - Product label confusion [None]
  - Product packaging confusion [None]
